FAERS Safety Report 12588556 (Version 1)
Quarter: 2016Q3

REPORT INFORMATION
  Report Type: Spontaneous
  Country: US (occurrence: US)
  Receive Date: 20160725
  Receipt Date: 20160725
  Transmission Date: 20161109
  Serious: No
  Sender: FDA-Public Use
  Company Number: US-JNJFOC-20160706280

PATIENT
  Age: 3 Month
  Sex: Female
  Weight: 6.8 kg

DRUGS (1)
  1. INFANTS TYLENOL [Suspect]
     Active Substance: ACETAMINOPHEN
     Indication: NASAL CONGESTION
     Dosage: HALF TEASPOON. TWICE DAILY.
     Route: 048
     Dates: start: 20160704, end: 20160705

REACTIONS (6)
  - Abdominal pain upper [Recovering/Resolving]
  - Off label use [Recovering/Resolving]
  - Drug administration error [Recovering/Resolving]
  - Abdominal discomfort [Recovering/Resolving]
  - Flatulence [Recovering/Resolving]
  - Product use issue [Recovering/Resolving]

NARRATIVE: CASE EVENT DATE: 20160704
